FAERS Safety Report 9970362 (Version 1)
Quarter: 2014Q1

REPORT INFORMATION
  Report Type: Spontaneous
  Country: US (occurrence: None)
  Receive Date: 20140305
  Receipt Date: 20140305
  Transmission Date: 20141002
  Serious: Yes (Disabling)
  Sender: FDA-Public Use
  Company Number: None

PATIENT
  Age: 52 Year
  Sex: Female
  Weight: 65.77 kg

DRUGS (5)
  1. LEVOFLOXACIN [Suspect]
     Indication: EAR PAIN
     Dosage: 1 PILL
     Route: 048
     Dates: start: 20121228, end: 20130103
  2. MULTI-VITAMIN [Concomitant]
  3. PURPLE ECHENACEA [Concomitant]
  4. GINGER [Concomitant]
  5. GARLIC [Concomitant]

REACTIONS (4)
  - Joint crepitation [None]
  - Joint swelling [None]
  - Arthralgia [None]
  - Joint stiffness [None]
